APPROVED DRUG PRODUCT: MINOCIN
Active Ingredient: MINOCYCLINE HYDROCHLORIDE
Strength: EQ 100MG BASE/VIAL
Dosage Form/Route: INJECTABLE;INJECTION
Application: N050444 | Product #001
Applicant: REMPEX PHARMACEUTICALS INC A WHOLLY OWNED SUB OF MELINTA THERAPEUTICS LLC
Approved: Approved Prior to Jan 1, 1982 | RLD: Yes | RS: Yes | Type: RX

PATENTS:
Patent 9084802 | Expires: May 12, 2031
Patent 9278105 | Expires: May 12, 2031
Patent 11944634 | Expires: Oct 16, 2032
Patent 12161656 | Expires: May 12, 2031